FAERS Safety Report 8357298-7 (Version None)
Quarter: 2012Q2

REPORT INFORMATION
  Report Type: 
  Country: None (occurrence: None)
  Receive Date: 20120514
  Receipt Date: 20120511
  Transmission Date: 20120825
  Serious: Yes (Death, Life-Threatening, Hospitalization)
  Sender: FDA-Public Use
  Company Number: PHHO2006JP13516

PATIENT
  Sex: Female
  Weight: 36 kg

DRUGS (3)
  1. MEROPENEM [Concomitant]
  2. TASIGNA [Suspect]
     Indication: CHRONIC MYELOID LEUKAEMIA
     Dosage: 400 MG, QD
     Route: 048
     Dates: start: 20060801, end: 20060801
  3. TASIGNA [Suspect]
     Dosage: 800 MG, QD
     Route: 048
     Dates: start: 20060802, end: 20060814

REACTIONS (21)
  - PERICARDIAL HAEMORRHAGE [None]
  - PLEURAL EFFUSION [None]
  - PARACENTESIS [None]
  - BLOOD LACTATE DEHYDROGENASE INCREASED [None]
  - HEPATOMEGALY [None]
  - HYPOTENSION [None]
  - ANAEMIA [None]
  - BRADYCARDIA [None]
  - TACHYCARDIA [None]
  - CARDIAC FAILURE [None]
  - HYPERGLYCAEMIA [None]
  - THROMBOPHLEBITIS [None]
  - CARDIAC TAMPONADE [None]
  - PLEURISY [None]
  - DEEP VEIN THROMBOSIS [None]
  - ATRIAL FIBRILLATION [None]
  - SINOATRIAL BLOCK [None]
  - PNEUMONIA [None]
  - PERICARDIAL EFFUSION [None]
  - CARDIAC DISORDER [None]
  - BACK PAIN [None]
